FAERS Safety Report 4835797-X (Version None)
Quarter: 2005Q4

REPORT INFORMATION
  Report Type: 
  Country: None (occurrence: None)
  Receive Date: 20051118
  Receipt Date: 20051107
  Transmission Date: 20060501
  Serious: Yes (Other)
  Sender: FDA-Public Use
  Company Number: 2005153842

PATIENT
  Sex: Female

DRUGS (3)
  1. PROVERA [Suspect]
     Indication: HORMONE REPLACEMENT THERAPY
     Dates: start: 19910101, end: 20000101
  2. MEDROXYPROGESTERONE ACETATE [Suspect]
     Indication: HORMONE REPLACEMENT THERAPY
     Dates: start: 19910101, end: 20000101
  3. PREMARIN [Suspect]
     Indication: HORMONE REPLACEMENT THERAPY
     Dates: start: 19910101, end: 20000101

REACTIONS (1)
  - BREAST CANCER FEMALE [None]
